FAERS Safety Report 7737518-X (Version None)
Quarter: 2011Q3

REPORT INFORMATION
  Report Type: 
  Country: None (occurrence: None)
  Receive Date: 20110908
  Receipt Date: 20110824
  Transmission Date: 20111222
  Serious: No
  Sender: FDA-Public Use
  Company Number: US-BAYER-2011-078074

PATIENT
  Age: 70 Year
  Sex: Male

DRUGS (1)
  1. SORAFENIB (RAF KINASE INHIBITOR) [Suspect]
     Indication: HEPATIC NEOPLASM MALIGNANT RECURRENT
     Dosage: 400 MG, BID

REACTIONS (2)
  - WEIGHT DECREASED [None]
  - FATIGUE [None]
